FAERS Safety Report 11602999 (Version 1)
Quarter: 2015Q4

REPORT INFORMATION
  Report Type: Spontaneous
  Country: US (occurrence: None)
  Receive Date: 20151005
  Receipt Date: 20151005
  Transmission Date: 20160304
  Serious: Yes (Other)
  Sender: FDA-Public Use
  Company Number: None

PATIENT
  Age: 15 Year
  Sex: Female

DRUGS (3)
  1. MULTIVITAMIN [Concomitant]
     Active Substance: VITAMINS
  2. PROAIR HFA [Concomitant]
     Active Substance: ALBUTEROL SULFATE
  3. VYVANSE [Suspect]
     Active Substance: LISDEXAMFETAMINE DIMESYLATE
     Indication: PRODUCT USED FOR UNKNOWN INDICATION
     Dosage: 1 PILL
     Dates: start: 20120910

REACTIONS (4)
  - Disturbance in attention [None]
  - Educational problem [None]
  - Feeling abnormal [None]
  - Suicidal ideation [None]

NARRATIVE: CASE EVENT DATE: 20151002
